FAERS Safety Report 23858853 (Version 2)
Quarter: 2024Q2

REPORT INFORMATION
  Report Type: Report from Study
  Country: TH (occurrence: TH)
  Receive Date: 20240515
  Receipt Date: 20240522
  Transmission Date: 20240716
  Serious: Yes (Death, Hospitalization, Other)
  Sender: FDA-Public Use
  Company Number: TH-BAYER-2024A063373

PATIENT
  Age: 44 Year
  Sex: Male

DRUGS (2)
  1. STIVARGA [Suspect]
     Active Substance: REGORAFENIB\REGORAFENIB MONOHYDRATE
     Indication: Colorectal cancer
     Dosage: 120 MG, QD
     Route: 048
     Dates: start: 20240317
  2. STIVARGA [Suspect]
     Active Substance: REGORAFENIB\REGORAFENIB MONOHYDRATE
     Indication: Colorectal cancer
     Dosage: UNK
     Dates: end: 20240510

REACTIONS (7)
  - Abdominal rigidity [Recovered/Resolved]
  - Abdominal rigidity [Unknown]
  - Dyspnoea [Unknown]
  - Respiratory failure [Fatal]
  - Colon cancer [Fatal]
  - Pleural effusion [Fatal]
  - Off label use [None]

NARRATIVE: CASE EVENT DATE: 20240317
